FAERS Safety Report 15059157 (Version 2)
Quarter: 2018Q4

REPORT INFORMATION
  Report Type: Spontaneous
  Country: US (occurrence: US)
  Receive Date: 20180625
  Receipt Date: 20181009
  Transmission Date: 20190204
  Serious: Yes (Hospitalization, Other)
  Sender: FDA-Public Use
  Company Number: US-009507513-1806USA010086

PATIENT
  Sex: Female
  Weight: 79.37 kg

DRUGS (1)
  1. NUVARING [Suspect]
     Active Substance: ETHINYL ESTRADIOL\ETONOGESTREL
     Indication: CONTRACEPTION
     Dosage: INSERT 1 RING VAGINALLY FOR 3 WEEKS THEN REMOVE 1 WEEK
     Route: 067
     Dates: start: 201603, end: 20160723

REACTIONS (26)
  - Cardiac arrest [Recovered/Resolved]
  - Depression [Unknown]
  - Limb injury [Unknown]
  - Encephalopathy [Unknown]
  - Syncope [Recovered/Resolved]
  - Cardiogenic shock [Recovered/Resolved]
  - Acute kidney injury [Unknown]
  - Haematoma [Unknown]
  - Coagulopathy [Unknown]
  - Anxiety [Unknown]
  - Post-traumatic stress disorder [Unknown]
  - Migraine [Unknown]
  - Disseminated intravascular coagulation [Recovered/Resolved]
  - Physical deconditioning [Recovering/Resolving]
  - Pulmonary contusion [Unknown]
  - Leukocytosis [Unknown]
  - Metabolic acidosis [Unknown]
  - Thrombosis [Unknown]
  - Pulmonary embolism [Unknown]
  - Acute respiratory failure [Recovered/Resolved]
  - Scab [Unknown]
  - Septic shock [Unknown]
  - Obstructive shock [Recovered/Resolved]
  - Iron deficiency anaemia [Unknown]
  - Ischaemic hepatitis [Recovering/Resolving]
  - Distributive shock [Unknown]

NARRATIVE: CASE EVENT DATE: 201606
